FAERS Safety Report 10687611 (Version 1)
Quarter: 2014Q4

REPORT INFORMATION
  Report Type: Spontaneous
  Country: FR (occurrence: None)
  Receive Date: 20141230
  Receipt Date: 20141230
  Transmission Date: 20150529
  Serious: Yes (Hospitalization)
  Sender: FDA-Public Use
  Company Number: 8003202D

PATIENT
  Age: 77 Year
  Sex: Female

DRUGS (1)
  1. LEVOTHYROX (LEVOTHYROXINE SODIUM) (100 MICROGRAM, TABLET) (LEVOTHYROXINE SODIUM) [Suspect]
     Active Substance: LEVOTHYROXINE
     Indication: PRODUCT USED FOR UNKNOWN INDICATION
     Route: 048

REACTIONS (3)
  - Chest pain [None]
  - Atrial fibrillation [None]
  - Overdose [None]

NARRATIVE: CASE EVENT DATE: 20141028
